FAERS Safety Report 16736616 (Version 2)
Quarter: 2020Q2

REPORT INFORMATION
  Report Type: Spontaneous
  Country: US (occurrence: US)
  Receive Date: 20190823
  Receipt Date: 20200514
  Transmission Date: 20200713
  Serious: No
  Sender: FDA-Public Use
  Company Number: US-BIOCODEX SA-201900795

PATIENT
  Sex: Female
  Weight: 63.5 kg

DRUGS (3)
  1. DIACOMIT [Suspect]
     Active Substance: STIRIPENTOL
     Indication: PRODUCT USED FOR UNKNOWN INDICATION
     Dosage: 3 CAPSULES AT 500MG TWICE DAILY
     Route: 048
     Dates: start: 20190604
  2. DIACOMIT [Suspect]
     Active Substance: STIRIPENTOL
     Dosage: 1500MG TWICE DAILY
     Route: 048
     Dates: start: 20190604
  3. CLOBAZAM. [Concomitant]
     Active Substance: CLOBAZAM
     Indication: PRODUCT USED FOR UNKNOWN INDICATION
     Route: 065

REACTIONS (4)
  - Nasopharyngitis [Unknown]
  - Chest discomfort [Recovered/Resolved]
  - Fatigue [Unknown]
  - Product use complaint [Unknown]
